FAERS Safety Report 23116016 (Version 1)
Quarter: 2023Q4

REPORT INFORMATION
  Report Type: Spontaneous
  Country: US (occurrence: None)
  Receive Date: 20231027
  Receipt Date: 20231027
  Transmission Date: 20240110
  Serious: Yes (Hospitalization)
  Sender: FDA-Public Use
  Company Number: US-FARMAPROD-202310-3083

PATIENT
  Sex: Male

DRUGS (12)
  1. OXERVATE [Suspect]
     Active Substance: CENEGERMIN-BKBJ
     Indication: Neurotrophic keratopathy
     Route: 047
     Dates: start: 20230907
  2. PREDNISOLONE ACETATE [Concomitant]
     Active Substance: PREDNISOLONE ACETATE
  3. OFLOXACIN [Concomitant]
     Active Substance: OFLOXACIN
  4. BETIMOL [Concomitant]
     Active Substance: TIMOLOL
  5. VITAMINS [Concomitant]
     Active Substance: VITAMINS
  6. METHOTREXATE [Concomitant]
     Active Substance: METHOTREXATE
  7. ROSUVASTATIN CALCIUM [Concomitant]
     Active Substance: ROSUVASTATIN CALCIUM
  8. NIFEDIPINE [Concomitant]
     Active Substance: NIFEDIPINE
     Dosage: 24 HOURS.
  9. FUROSEMIDE [Concomitant]
     Active Substance: FUROSEMIDE
  10. CLONIDINE HYDROCHLORIDE [Concomitant]
     Active Substance: CLONIDINE HYDROCHLORIDE
  11. METFORMIN HYDROCHLORIDE [Concomitant]
     Active Substance: METFORMIN HYDROCHLORIDE
  12. ASPIRIN [Concomitant]
     Active Substance: ASPIRIN

REACTIONS (1)
  - Peripheral swelling [Unknown]
